FAERS Safety Report 23177049 (Version 1)
Quarter: 2023Q4

REPORT INFORMATION
  Report Type: Spontaneous
  Country: US (occurrence: None)
  Receive Date: 20231112
  Receipt Date: 20231112
  Transmission Date: 20240109
  Serious: Yes (Other)
  Sender: FDA-Public Use
  Company Number: None

PATIENT
  Age: 51 Year
  Sex: Female

DRUGS (3)
  1. LETROZOLE [Suspect]
     Active Substance: LETROZOLE
     Dosage: FREQUENCY : DAILY;?
     Route: 048
     Dates: start: 20230801, end: 20230829
  2. METHOTREXATE [Concomitant]
     Active Substance: METHOTREXATE
  3. ZOLOFT [Concomitant]
     Active Substance: SERTRALINE HYDROCHLORIDE

REACTIONS (5)
  - Peripheral swelling [None]
  - Mobility decreased [None]
  - Drug ineffective [None]
  - Limb discomfort [None]
  - Joint swelling [None]

NARRATIVE: CASE EVENT DATE: 20230830
